FAERS Safety Report 5243977-7 (Version None)
Quarter: 2007Q1

REPORT INFORMATION
  Report Type: 
  Country: None (occurrence: None)
  Receive Date: 20070220
  Receipt Date: 20070220
  Transmission Date: 20070707
  Serious: No
  Sender: FDA-Public Use
  Company Number: None

PATIENT
  Age: 73 Year
  Sex: Female
  Weight: 89.3 kg

DRUGS (8)
  1. HEPARIN [Suspect]
     Indication: CHEST PAIN
     Dates: start: 20070201, end: 20070201
  2. HEPARIN [Suspect]
  3. ASPIRIN [Concomitant]
  4. CELEBREX [Concomitant]
  5. ENALAPRIL MALEATE [Concomitant]
  6. HYDROCHLOROTHIAZIDE [Concomitant]
  7. NEXIUM [Concomitant]
  8. TOPROL-XL [Concomitant]

REACTIONS (1)
  - URTICARIA [None]
